APPROVED DRUG PRODUCT: TURALIO
Active Ingredient: PEXIDARTINIB HYDROCHLORIDE
Strength: EQ 125MG BASE
Dosage Form/Route: CAPSULE;ORAL
Application: N211810 | Product #002
Applicant: DAIICHI SANKYO INC
Approved: Oct 14, 2022 | RLD: Yes | RS: Yes | Type: RX

PATENTS:
Patent 10189833 | Expires: May 5, 2036
Patent 9358235 | Expires: Jun 8, 2033
Patent 8461169 | Expires: Apr 19, 2028
Patent 10961240 | Expires: Jul 24, 2038
Patent 8404700 | Expires: Nov 21, 2027
Patent 10730876 | Expires: May 5, 2036
Patent 7893075 | Expires: May 4, 2033
Patent 10941142 | Expires: Jul 24, 2038
Patent 10435404 | Expires: Jul 24, 2038
Patent 8722702 | Expires: Nov 21, 2027
Patent 9802932 | Expires: May 5, 2036
Patent 9169250 | Expires: Nov 21, 2027

EXCLUSIVITY:
Code: ODE* | Date: Aug 2, 2026